FAERS Safety Report 11150680 (Version 2)
Quarter: 2015Q3

REPORT INFORMATION
  Report Type: Spontaneous
  Country: JP (occurrence: JP)
  Receive Date: 20150601
  Receipt Date: 20150930
  Transmission Date: 20151125
  Serious: Yes (Other)
  Sender: FDA-Public Use
  Company Number: JP-BRISTOL-MYERS SQUIBB COMPANY-BMS-2015-034573

PATIENT
  Age: 79 Year
  Sex: Male

DRUGS (4)
  1. ERBITUX [Suspect]
     Active Substance: CETUXIMAB
     Indication: SQUAMOUS CELL CARCINOMA OF HEAD AND NECK
     Dosage: UNK
     Route: 041
     Dates: start: 20141201, end: 20150119
  2. KYTRIL [Suspect]
     Active Substance: GRANISETRON HYDROCHLORIDE
     Indication: PRODUCT USED FOR UNKNOWN INDICATION
     Route: 065
  3. TAKEPRON [Suspect]
     Active Substance: LANSOPRAZOLE
     Indication: PRODUCT USED FOR UNKNOWN INDICATION
     Route: 065
  4. OXYCONTIN [Suspect]
     Active Substance: OXYCODONE HYDROCHLORIDE
     Indication: PAIN
     Route: 048

REACTIONS (22)
  - Cellulitis [Unknown]
  - Diarrhoea [Recovered/Resolved]
  - Hyponatraemia [Unknown]
  - Urinary retention [Recovering/Resolving]
  - Paronychia [Recovering/Resolving]
  - Radiation skin injury [Recovered/Resolved]
  - Hypomagnesaemia [Unknown]
  - Fatigue [Not Recovered/Not Resolved]
  - Hiccups [Recovered/Resolved]
  - Hypocalcaemia [Unknown]
  - Pyrexia [Recovered/Resolved]
  - Decreased appetite [Recovering/Resolving]
  - Dry skin [Recovering/Resolving]
  - Dermatitis acneiform [Recovering/Resolving]
  - Aspartate aminotransferase increased [Unknown]
  - Stomatitis [Recovering/Resolving]
  - Dysgeusia [Recovering/Resolving]
  - Nausea [Recovered/Resolved]
  - Hypersomnia [Recovered/Resolved]
  - Alanine aminotransferase increased [Unknown]
  - Pharyngeal inflammation [Recovering/Resolving]
  - Hypokalaemia [Unknown]

NARRATIVE: CASE EVENT DATE: 20141202
